FAERS Safety Report 17283483 (Version 1)
Quarter: 2020Q1

REPORT INFORMATION
  Report Type: Spontaneous
  Country: US (occurrence: US)
  Receive Date: 20200117
  Receipt Date: 20200117
  Transmission Date: 20200409
  Serious: Yes (Hospitalization)
  Sender: FDA-Public Use
  Company Number: None

PATIENT
  Age: 56 Year
  Weight: 89 kg

DRUGS (17)
  1. ACETAMINOPHEN. [Concomitant]
     Active Substance: ACETAMINOPHEN
  2. ZOLEDRONIC ACID [Concomitant]
     Active Substance: ZOLEDRONIC ACID
  3. NEUPOGEN [Concomitant]
     Active Substance: FILGRASTIM
  4. EPINEPHRINE. [Concomitant]
     Active Substance: EPINEPHRINE
  5. XPOVIO [Suspect]
     Active Substance: SELINEXOR
     Indication: PLASMA CELL MYELOMA
     Dosage: ?          OTHER FREQUENCY:2X A WEEK DAYS 1+3;?
     Route: 048
     Dates: start: 20191022
  6. ONDANSETRON [Concomitant]
     Active Substance: ONDANSETRON
  7. SODIUM CHLORIDE FLUSH [Concomitant]
     Active Substance: SODIUM CHLORIDE
  8. OMEPRAZOLE. [Concomitant]
     Active Substance: OMEPRAZOLE
  9. DEXAMETHASONE. [Concomitant]
     Active Substance: DEXAMETHASONE
  10. POMALYST [Concomitant]
     Active Substance: POMALIDOMIDE
  11. KLONOPIN [Concomitant]
     Active Substance: CLONAZEPAM
  12. SIMVASTATIN. [Concomitant]
     Active Substance: SIMVASTATIN
  13. LISINOPRIL. [Concomitant]
     Active Substance: LISINOPRIL
  14. HYDROCORTISONE IV [Concomitant]
  15. DIPHENHYDRAMINE. [Concomitant]
     Active Substance: DIPHENHYDRAMINE
  16. ACYCLOVIR. [Concomitant]
     Active Substance: ACYCLOVIR
  17. ULTRACET [Concomitant]
     Active Substance: ACETAMINOPHEN\TRAMADOL HYDROCHLORIDE

REACTIONS (4)
  - Decreased appetite [None]
  - Asthenia [None]
  - Nausea [None]
  - Haemoglobin decreased [None]

NARRATIVE: CASE EVENT DATE: 20191230
